FAERS Safety Report 16001789 (Version 3)
Quarter: 2021Q1

REPORT INFORMATION
  Report Type: Spontaneous
  Country: US (occurrence: US)
  Receive Date: 20190225
  Receipt Date: 20210302
  Transmission Date: 20210419
  Serious: No
  Sender: FDA-Public Use
  Company Number: US-ALLERGAN-1809392US

PATIENT
  Age: 68 Year
  Sex: Male

DRUGS (3)
  1. ANTIHYPERTENSIVES [Concomitant]
     Active Substance: UNSPECIFIED INGREDIENT
     Indication: HYPERTENSION
     Dosage: UNK
  2. NORCO [Suspect]
     Active Substance: ACETAMINOPHEN\HYDROCODONE BITARTRATE
     Indication: PAIN
     Dosage: 1 DF, TID
     Route: 048
     Dates: start: 20190117
  3. ATIVAN [Suspect]
     Active Substance: LORAZEPAM
     Indication: ANXIETY
     Dosage: UNK, PRN
     Route: 065

REACTIONS (6)
  - Arthralgia [Unknown]
  - Dry mouth [Not Recovered/Not Resolved]
  - Wrong technique in product usage process [Unknown]
  - Product quality issue [Unknown]
  - Somnolence [Not Recovered/Not Resolved]
  - Drug ineffective [Unknown]

NARRATIVE: CASE EVENT DATE: 20190117
